FAERS Safety Report 23251890 (Version 1)
Quarter: 2023Q4

REPORT INFORMATION
  Report Type: Spontaneous
  Country: FR (occurrence: FR)
  Receive Date: 20231201
  Receipt Date: 20231201
  Transmission Date: 20240109
  Serious: Yes (Death)
  Sender: FDA-Public Use
  Company Number: None

PATIENT
  Age: 58 Year
  Sex: Male
  Weight: 60 kg

DRUGS (6)
  1. MORPHINE SULFATE [Suspect]
     Active Substance: MORPHINE SULFATE
     Indication: Pain
     Dosage: SI BESOIN 1CP TOUTES LES 4 H
     Route: 048
     Dates: start: 20230628
  2. CARBOPLATIN [Suspect]
     Active Substance: CARBOPLATIN
     Indication: Lung adenocarcinoma
     Dosage: 530.000MG
     Route: 042
     Dates: start: 20230628, end: 20230628
  3. PEMETREXED [Suspect]
     Active Substance: PEMETREXED
     Indication: Lung adenocarcinoma
     Dosage: 850.000MG
     Route: 042
     Dates: start: 20230628, end: 20230628
  4. PEMBROLIZUMAB [Suspect]
     Active Substance: PEMBROLIZUMAB
     Indication: Lung adenocarcinoma
     Dosage: 200.000MG
     Route: 042
     Dates: start: 20230628, end: 20230628
  5. SKENAN [Suspect]
     Active Substance: MORPHINE SULFATE
     Indication: Pain
     Dosage: 1 G?LULE MATIN ET SOIR
     Route: 048
     Dates: start: 20230628, end: 20230629
  6. SKENAN [Suspect]
     Active Substance: MORPHINE SULFATE
     Dosage: 2 G?LULES MATIN ET SOIR
     Route: 048
     Dates: start: 20230630

REACTIONS (2)
  - Cardiac arrest [Fatal]
  - Vomiting [Not Recovered/Not Resolved]

NARRATIVE: CASE EVENT DATE: 20230630
